FAERS Safety Report 8472193-0 (Version None)
Quarter: 2012Q2

REPORT INFORMATION
  Report Type: 
  Country: None (occurrence: None)
  Receive Date: 20120627
  Receipt Date: 20120619
  Transmission Date: 20120825
  Serious: Yes (Other)
  Sender: FDA-Public Use
  Company Number: JP-MERCK-1206USA04154

PATIENT
  Age: 10 Month
  Sex: Female

DRUGS (1)
  1. PEPCID [Suspect]
     Indication: PROPHYLAXIS
     Route: 048

REACTIONS (2)
  - PFAPA SYNDROME [None]
  - DRUG INEFFECTIVE FOR UNAPPROVED INDICATION [None]
